FAERS Safety Report 23732330 (Version 1)
Quarter: 2024Q2

REPORT INFORMATION
  Report Type: Spontaneous
  Country: CN (occurrence: CN)
  Receive Date: 20240411
  Receipt Date: 20240411
  Transmission Date: 20240716
  Serious: Yes (Hospitalization, Other)
  Sender: FDA-Public Use
  Company Number: CN-BAYER-2024A051791

PATIENT
  Age: 50 Year
  Sex: Male
  Weight: 72.7 kg

DRUGS (1)
  1. AVELOX [Suspect]
     Active Substance: MOXIFLOXACIN HYDROCHLORIDE
     Indication: Pneumonia
     Dosage: 400 MG, QD
     Route: 048
     Dates: start: 20240306, end: 20240311

REACTIONS (6)
  - Pyrexia [None]
  - Temperature intolerance [None]
  - Chills [None]
  - Electrocardiogram ST-T segment abnormal [None]
  - Electrocardiogram QT prolonged [Not Recovered/Not Resolved]
  - Electrocardiogram high voltage [None]

NARRATIVE: CASE EVENT DATE: 20240322
